FAERS Safety Report 5832531-1 (Version None)
Quarter: 2008Q3

REPORT INFORMATION
  Report Type: 
  Country: None (occurrence: None)
  Receive Date: 20080804
  Receipt Date: 20080729
  Transmission Date: 20090109
  Serious: Yes (Hospitalization)
  Sender: FDA-Public Use
  Company Number: JP-BRISTOL-MYERS SQUIBB COMPANY-14286777

PATIENT
  Age: 43 Year
  Sex: Female

DRUGS (10)
  1. EFAVIRENZ [Suspect]
     Indication: HIV INFECTION
     Route: 048
     Dates: start: 20000218
  2. ZERIT [Suspect]
     Indication: HIV INFECTION
     Dosage: ALSO TAKEN DURING 05DEC02-04SEP03,80MG/D,ORAL,DURATION:274D.
     Route: 048
     Dates: start: 19971110, end: 20000217
  3. EPIVIR [Suspect]
     Indication: HIV INFECTION
     Dosage: THRPY:01SEP-06OCT07,10NOV97-22JUN00,05DEC02-20JUL05,PO.
     Route: 048
     Dates: start: 19971110, end: 20000622
  4. VIRACEPT [Suspect]
     Indication: HIV INFECTION
     Dosage: 01SEP-06OCT97,36D,750MG,TID;10NOV97-14MAR99,750MG,490D,TID;15MAR99-17FEB00,340D,1250MG;PO,BID.
     Route: 048
     Dates: start: 19971110, end: 19990314
  5. RETROVIR [Suspect]
     Indication: HIV INFECTION
     Dosage: THRPY: 01SEP-06OCT97,100MG/QID;18FEB-14JUN00,200MG/BID,15JUN-22JUN00,600MG/D.
     Route: 048
     Dates: start: 19970901, end: 19971006
  6. COMBIVIR [Suspect]
     Indication: HIV INFECTION
     Route: 048
     Dates: start: 20000623, end: 20021205
  7. EPZICOM [Suspect]
     Indication: HIV INFECTION
     Route: 048
     Dates: start: 20050721
  8. ZOVIRAX [Concomitant]
     Dates: start: 19990114, end: 20000525
  9. CLARITHROMYCIN [Concomitant]
     Dates: start: 19970901, end: 19990421
  10. COTRIM [Concomitant]
     Dates: end: 19990819

REACTIONS (2)
  - DIABETES MELLITUS [None]
  - LIPODYSTROPHY ACQUIRED [None]
